FAERS Safety Report 20523152 (Version 2)
Quarter: 2022Q2

REPORT INFORMATION
  Report Type: Spontaneous
  Country: US (occurrence: US)
  Receive Date: 20220227
  Receipt Date: 20220405
  Transmission Date: 20220721
  Serious: Yes (Death)
  Sender: FDA-Public Use
  Company Number: US-JNJFOC-20220255425

PATIENT
  Age: 80 Year
  Sex: Male
  Weight: 112 kg

DRUGS (6)
  1. ZYTIGA [Suspect]
     Active Substance: ABIRATERONE ACETATE
     Indication: Product used for unknown indication
     Route: 048
     Dates: start: 20210427, end: 20220219
  2. OPSUMIT [Concomitant]
     Active Substance: MACITENTAN
     Indication: Cardiac disorder
     Route: 065
     Dates: start: 2020
  3. ASPIRIN [Concomitant]
     Active Substance: ASPIRIN
     Indication: Cardiac disorder
     Route: 065
     Dates: start: 2020
  4. FUROSEMIDE [Concomitant]
     Active Substance: FUROSEMIDE
     Indication: Product used for unknown indication
     Route: 065
     Dates: start: 2020
  5. MONTELUKAST [Concomitant]
     Active Substance: MONTELUKAST SODIUM
     Indication: Asthma
     Route: 065
     Dates: start: 2020
  6. TADALAFIL [Concomitant]
     Active Substance: TADALAFIL
     Indication: Cardiac disorder
     Route: 065
     Dates: start: 2020

REACTIONS (1)
  - Death [Fatal]
